FAERS Safety Report 5281349-X (Version None)
Quarter: 2007Q1

REPORT INFORMATION
  Report Type: 
  Country: None (occurrence: None)
  Receive Date: 20070330
  Receipt Date: 20070320
  Transmission Date: 20070707
  Serious: Yes (Hospitalization)
  Sender: FDA-Public Use
  Company Number: DE-JNJFOC-20070304482

PATIENT
  Age: 48 Year
  Sex: Female

DRUGS (2)
  1. TAVANIC [Suspect]
     Indication: URINARY TRACT INFECTION
     Route: 048
  2. ANTIHYPERTENSIVES NOS [Concomitant]
     Indication: HYPERTENSION
     Route: 065

REACTIONS (1)
  - COLITIS [None]
